FAERS Safety Report 9767581 (Version 1)
Quarter: 2013Q4

REPORT INFORMATION
  Report Type: Spontaneous
  Country: US (occurrence: None)
  Receive Date: 20131213
  Receipt Date: 20131213
  Transmission Date: 20140711
  Serious: Yes (Other)
  Sender: FDA-Public Use
  Company Number: 2013SA032856

PATIENT
  Sex: Male

DRUGS (5)
  1. ICY HOT BACK PATCH [Suspect]
     Indication: PRODUCT USED FOR UNKNOWN INDICATION
     Route: 061
  2. COUMADINE [Concomitant]
  3. LEVOXYL [Concomitant]
  4. TOPROL XL [Concomitant]
  5. FLOMAX [Concomitant]

REACTIONS (3)
  - Chemical injury [None]
  - Scar [None]
  - Application site burn [None]
